FAERS Safety Report 25262269 (Version 1)
Quarter: 2025Q2

REPORT INFORMATION
  Report Type: Spontaneous
  Country: US (occurrence: US)
  Receive Date: 20250502
  Receipt Date: 20250502
  Transmission Date: 20250717
  Serious: No
  Sender: GRIFOLS
  Company Number: US-IGSA-BIG0034770

PATIENT
  Sex: Male

DRUGS (2)
  1. XEMBIFY [Suspect]
     Active Substance: HUMAN IMMUNOGLOBULIN G
     Indication: Primary immunodeficiency syndrome
     Dosage: 8 GRAM, Q.WK.
     Route: 058
  2. XEMBIFY [Suspect]
     Active Substance: HUMAN IMMUNOGLOBULIN G
     Dosage: 8 GRAM, Q.WK.
     Route: 058

REACTIONS (3)
  - Infusion site erythema [Recovered/Resolved]
  - Infusion site pain [Recovered/Resolved]
  - Infusion site urticaria [Recovered/Resolved]

NARRATIVE: CASE EVENT DATE: 20250306
